FAERS Safety Report 21308607 (Version 1)
Quarter: 2022Q3

REPORT INFORMATION
  Report Type: Spontaneous
  Country: US (occurrence: None)
  Receive Date: 20220908
  Receipt Date: 20220908
  Transmission Date: 20221027
  Serious: Yes (Other)
  Sender: FDA-Public Use
  Company Number: None

PATIENT
  Age: 74 Year
  Sex: Female

DRUGS (1)
  1. YESCARTA [Suspect]
     Active Substance: AXICABTAGENE CILOLEUCEL
     Indication: Follicular lymphoma
     Dates: start: 20220117, end: 20220117

REACTIONS (1)
  - Immune effector cell-associated neurotoxicity syndrome [None]

NARRATIVE: CASE EVENT DATE: 20220129
